FAERS Safety Report 21559547 (Version 1)
Quarter: 2022Q4

REPORT INFORMATION
  Report Type: Spontaneous
  Country: US (occurrence: None)
  Receive Date: 20221105
  Receipt Date: 20221105
  Transmission Date: 20230113
  Serious: Yes (Hospitalization, Other)
  Sender: FDA-Public Use
  Company Number: None

PATIENT
  Age: 59 Year
  Sex: Male
  Weight: 96.75 kg

DRUGS (7)
  1. DAKINS FULL [Suspect]
     Active Substance: SODIUM HYPOCHLORITE
     Indication: Diabetic foot
     Dosage: FREQUENCY : 4 TIMES A DAY;?
     Route: 061
     Dates: start: 20220919, end: 20220923
  2. METFORMIN [Concomitant]
     Active Substance: METFORMIN HYDROCHLORIDE
  3. insulin injections [Concomitant]
  4. VITAMIN D3 [Concomitant]
     Active Substance: CHOLECALCIFEROL
  5. VITAMIN C [Concomitant]
     Active Substance: ASCORBIC ACID
  6. ZINC [Concomitant]
     Active Substance: ZINC
  7. POTASSIUM GLUCONATE [Concomitant]
     Active Substance: POTASSIUM GLUCONATE

REACTIONS (2)
  - Chemical burn [None]
  - Skin graft [None]

NARRATIVE: CASE EVENT DATE: 20220923
